FAERS Safety Report 6041233-0 (Version None)
Quarter: 2009Q1

REPORT INFORMATION
  Report Type: 
  Country: None (occurrence: None)
  Receive Date: 20090116
  Receipt Date: 20080919
  Transmission Date: 20090719
  Serious: No
  Sender: FDA-Public Use
  Company Number: PR-BRISTOL-MYERS SQUIBB COMPANY-14341580

PATIENT
  Age: 49 Year
  Sex: Female

DRUGS (6)
  1. ABILIFY [Suspect]
     Indication: MAJOR DEPRESSION
     Dosage: INITIAL DOSE: 1 DOSE OF ABILIFY 10MG
     Dates: start: 20080908
  2. WELLBUTRIN XL [Concomitant]
  3. LAMICTAL [Concomitant]
  4. PROSOM [Concomitant]
  5. BUSPAR [Concomitant]
  6. KLONOPIN [Concomitant]

REACTIONS (1)
  - RASH [None]
